FAERS Safety Report 18980469 (Version 1)
Quarter: 2021Q1

REPORT INFORMATION
  Report Type: Spontaneous
  Country: US (occurrence: US)
  Receive Date: 20210308
  Receipt Date: 20210308
  Transmission Date: 20210420
  Serious: Yes (Other)
  Sender: FDA-Public Use
  Company Number: US-GW PHARMA-202102USGW00877

PATIENT

DRUGS (5)
  1. ONFI [Concomitant]
     Active Substance: CLOBAZAM
     Dosage: DOSE INCREASED
     Route: 065
     Dates: start: 2020
  2. ONFI [Concomitant]
     Active Substance: CLOBAZAM
     Indication: PRODUCT USED FOR UNKNOWN INDICATION
     Dosage: UNK
     Route: 065
  3. EPIDIOLEX [Suspect]
     Active Substance: CANNABIDIOL
     Dosage: 24.93 MG/KG/QD, 260 MILLIGRAM, BID
     Route: 048
  4. EPIDIOLEX [Suspect]
     Active Substance: CANNABIDIOL
     Indication: PARTIAL SEIZURES
     Dosage: 2.88 MG/KG/DAY, 30 MILLIGRAM, BID
     Route: 048
     Dates: start: 2018
  5. EPIDIOLEX [Suspect]
     Active Substance: CANNABIDIOL
     Dosage: 23.01 MG/KG/DAY, 240 MILLIGRAM, BID
     Route: 048

REACTIONS (7)
  - Petit mal epilepsy [Not Recovered/Not Resolved]
  - Change in seizure presentation [Unknown]
  - Product use in unapproved indication [Unknown]
  - Prescribed overdose [Unknown]
  - Drug effective for unapproved indication [Unknown]
  - Mydriasis [Unknown]
  - Behaviour disorder [Recovering/Resolving]

NARRATIVE: CASE EVENT DATE: 2020
